FAERS Safety Report 12630822 (Version 1)
Quarter: 2016Q3

REPORT INFORMATION
  Report Type: Report from Study
  Country: BR (occurrence: BR)
  Receive Date: 20160808
  Receipt Date: 20160808
  Transmission Date: 20161109
  Serious: Yes (Other)
  Sender: FDA-Public Use
  Company Number: BR-JNJFOC-20160805421

PATIENT
  Age: 60 Year
  Sex: Female

DRUGS (1)
  1. REMICADE [Suspect]
     Active Substance: INFLIXIMAB
     Indication: CROHN^S DISEASE
     Dosage: WEEK 0, PATIENT STARTED TREATMENT ON 4-AUG-2016
     Route: 042
     Dates: start: 20160804

REACTIONS (4)
  - Asthenia [Unknown]
  - Speech disorder [Unknown]
  - Somnolence [Unknown]
  - Syncope [Unknown]

NARRATIVE: CASE EVENT DATE: 20160804
